FAERS Safety Report 7942090-5 (Version None)
Quarter: 2011Q4

REPORT INFORMATION
  Report Type: 
  Country: None (occurrence: None)
  Receive Date: 20111128
  Receipt Date: 20111122
  Transmission Date: 20120403
  Serious: Yes (Life-Threatening, Hospitalization)
  Sender: FDA-Public Use
  Company Number: AT-B.I. PHARMACEUTICALS,INC./RIDGEFIELD-2011-AP-00642AP

PATIENT
  Age: 62 Year
  Sex: Female
  Weight: 80 kg

DRUGS (5)
  1. ADAMON [Concomitant]
     Indication: ANALGESIC THERAPY
     Dosage: 150 MG
     Route: 048
     Dates: start: 20111109
  2. XEFO [Concomitant]
     Indication: ANALGESIC THERAPY
     Dosage: 16 MG
     Route: 048
     Dates: start: 20111109
  3. PRADAXA [Suspect]
     Indication: KNEE ARTHROPLASTY
     Dosage: 220 MG
     Route: 048
     Dates: start: 20111110, end: 20111116
  4. AGOPTON [Concomitant]
     Indication: PROPHYLAXIS AGAINST GASTROINTESTINAL ULCER
     Dosage: 30 MG
     Route: 048
     Dates: start: 20111109
  5. CONCOR [Concomitant]
     Indication: SINUS TACHYCARDIA
     Dosage: 5 MG
     Route: 048
     Dates: start: 20111109

REACTIONS (1)
  - PULMONARY EMBOLISM [None]
